FAERS Safety Report 24433288 (Version 2)
Quarter: 2025Q3

REPORT INFORMATION
  Report Type: Report from Study
  Country: US (occurrence: US)
  Receive Date: 20241014
  Receipt Date: 20250809
  Transmission Date: 20251020
  Serious: Yes (Other)
  Sender: ALEXION PHARMACEUTICALS
  Company Number: US-AstraZeneca-CH-00716146A

PATIENT
  Sex: Male

DRUGS (6)
  1. SOLIRIS [Suspect]
     Active Substance: ECULIZUMAB
     Indication: Atypical haemolytic uraemic syndrome
  2. SOLIRIS [Suspect]
     Active Substance: ECULIZUMAB
  3. SOLIRIS [Suspect]
     Active Substance: ECULIZUMAB
  4. SOLIRIS [Suspect]
     Active Substance: ECULIZUMAB
  5. SOLIRIS [Suspect]
     Active Substance: ECULIZUMAB
  6. SOLIRIS [Suspect]
     Active Substance: ECULIZUMAB

REACTIONS (4)
  - Pneumonia [Recovered/Resolved]
  - Staphylococcal sepsis [Recovered/Resolved]
  - Coma [Unknown]
  - Blindness [Unknown]
